FAERS Safety Report 5716323-X (Version None)
Quarter: 2008Q2

REPORT INFORMATION
  Report Type: 
  Country: None (occurrence: None)
  Receive Date: 20080424
  Receipt Date: 20080416
  Transmission Date: 20081010
  Serious: Yes (Death)
  Sender: FDA-Public Use
  Company Number: GB-MERCK-0804USA03996

PATIENT

DRUGS (2)
  1. DECADRON [Suspect]
     Indication: AMYLOIDOSIS
     Route: 048
  2. BORTEZOMIB [Suspect]
     Indication: AMYLOIDOSIS
     Route: 041

REACTIONS (2)
  - GASTROINTESTINAL HAEMORRHAGE [None]
  - RENAL FAILURE [None]
